FAERS Safety Report 19175910 (Version 1)
Quarter: 2021Q2

REPORT INFORMATION
  Report Type: Spontaneous
  Country: US (occurrence: US)
  Receive Date: 20210423
  Receipt Date: 20210423
  Transmission Date: 20210717
  Serious: No
  Sender: FDA-Public Use
  Company Number: US-B.BRAUN MEDICAL INC.-2109709

PATIENT

DRUGS (2)
  1. HEPARIN SODIUM. [Suspect]
     Active Substance: HEPARIN SODIUM
  2. HEPARIN SODIUM INJECTION USP [Suspect]
     Active Substance: HEPARIN SODIUM

REACTIONS (1)
  - No adverse event [None]
